FAERS Safety Report 8460230-9 (Version None)
Quarter: 2012Q2

REPORT INFORMATION
  Report Type: 
  Country: None (occurrence: None)
  Receive Date: 20120323
  Receipt Date: 20110920
  Transmission Date: 20120825
  Serious: Yes (Hospitalization)
  Sender: FDA-Public Use
  Company Number: 163-21880-11092583

PATIENT
  Age: 83 Year
  Sex: Female

DRUGS (2)
  1. REVLIMID [Suspect]
     Indication: MULTIPLE MYELOMA
     Dosage: 15 MG, QD FOR 21 DAYS, PO, 15 MG, QD FOR 21 DAYS, PO
     Route: 048
     Dates: end: 20110826
  2. REVLIMID [Suspect]
     Indication: MULTIPLE MYELOMA
     Dosage: 15 MG, QD FOR 21 DAYS, PO, 15 MG, QD FOR 21 DAYS, PO
     Route: 048
     Dates: start: 20110902

REACTIONS (1)
  - HIP FRACTURE [None]
